FAERS Safety Report 7738702-1 (Version None)
Quarter: 2011Q3

REPORT INFORMATION
  Report Type: 
  Country: None (occurrence: None)
  Receive Date: 20110908
  Receipt Date: 20110906
  Transmission Date: 20111222
  Serious: Yes (Other)
  Sender: FDA-Public Use
  Company Number: US-PFIZER INC-2011208590

PATIENT
  Age: 80 Year
  Sex: Female

DRUGS (1)
  1. PREMARIN [Suspect]
     Indication: ATROPHIC VULVOVAGINITIS
     Dosage: UNK
     Route: 067

REACTIONS (1)
  - VAGINAL HAEMORRHAGE [None]
